FAERS Safety Report 7795181-6 (Version None)
Quarter: 2011Q3

REPORT INFORMATION
  Report Type: 
  Country: None (occurrence: None)
  Receive Date: 20110930
  Receipt Date: 20110915
  Transmission Date: 20111222
  Serious: Yes (Death, Hospitalization)
  Sender: FDA-Public Use
  Company Number: 2011MA010839

PATIENT
  Age: 64 Year
  Sex: Female
  Weight: 37.5 kg

DRUGS (8)
  1. PACLITAXEL [Suspect]
     Indication: LUNG ADENOCARCINOMA
     Dosage: 920 MG/BODY
     Dates: start: 20040301, end: 20090101
  2. GEMCITABINE [Suspect]
     Indication: LUNG ADENOCARCINOMA
     Dosage: 18970 MG/BODY
     Dates: start: 20040301, end: 20090101
  3. CISPLATIN [Suspect]
     Indication: LUNG ADENOCARCINOMA
     Dosage: 324 MG/BODY
     Dates: start: 20040301, end: 20090101
  4. IRINOTECAN HCL [Suspect]
     Indication: LUNG ADENOCARCINOMA
     Dosage: 6156 MG/BODY
     Dates: start: 20040301, end: 20090101
  5. VINORELBINE [Suspect]
     Indication: LUNG ADENOCARCINOMA
     Dosage: 102 MG/BODY
     Dates: start: 20040301, end: 20090101
  6. CARBOPLATIN [Suspect]
     Indication: LUNG ADENOCARCINOMA
     Dosage: 2400 MG/BODY
     Dates: start: 20040301, end: 20090101
  7. DOCETAXEL [Suspect]
     Indication: LUNG ADENOCARCINOMA
     Dosage: 556 MG/BODY
     Dates: start: 20040301, end: 20090101
  8. GEFTINIB (GEFTINIB) [Suspect]
     Indication: LUNG ADENOCARCINOMA
     Dosage: 3250 MG/BODY
     Dates: start: 20040301, end: 20090101

REACTIONS (10)
  - BLOOD ALKALINE PHOSPHATASE INCREASED [None]
  - BLOOD SODIUM DECREASED [None]
  - GENERAL PHYSICAL HEALTH DETERIORATION [None]
  - NEOPLASM PROGRESSION [None]
  - PNEUMONIA [None]
  - LUNG ADENOCARCINOMA METASTATIC [None]
  - BLOOD CHLORIDE DECREASED [None]
  - ACUTE MYELOID LEUKAEMIA [None]
  - METASTASES TO CENTRAL NERVOUS SYSTEM [None]
  - BLOOD LACTATE DEHYDROGENASE INCREASED [None]
